FAERS Safety Report 11342229 (Version 3)
Quarter: 2015Q3

REPORT INFORMATION
  Report Type: Other
  Country: IT (occurrence: IT)
  Receive Date: 20150805
  Receipt Date: 20150827
  Transmission Date: 20151125
  Serious: Yes (Death, Life-Threatening, Hospitalization)
  Sender: FDA-Public Use
  Company Number: IT-MYLANLABS-2015M1026318

PATIENT

DRUGS (1)
  1. METFORMIN HYDROCHLORIDE. [Suspect]
     Active Substance: METFORMIN HYDROCHLORIDE
     Indication: TYPE 2 DIABETES MELLITUS

REACTIONS (18)
  - Lactic acidosis [Unknown]
  - Sepsis [Unknown]
  - Acute respiratory distress syndrome [Unknown]
  - Diarrhoea [Unknown]
  - Metabolic acidosis [Unknown]
  - Lung infection [Unknown]
  - Respiratory failure [Unknown]
  - Distributive shock [Unknown]
  - Toxicity to various agents [Recovered/Resolved]
  - Pneumococcal infection [Unknown]
  - Multi-organ failure [Fatal]
  - Superinfection [Unknown]
  - Escherichia test positive [Unknown]
  - Cellulitis [Unknown]
  - Pyrexia [Unknown]
  - Enterobacter test positive [Unknown]
  - General physical health deterioration [Unknown]
  - Streptococcus test positive [Unknown]

NARRATIVE: CASE EVENT DATE: 201507
